FAERS Safety Report 22386454 (Version 1)
Quarter: 2023Q2

REPORT INFORMATION
  Report Type: Report from Study
  Country: US (occurrence: US)
  Receive Date: 20230531
  Receipt Date: 20230531
  Transmission Date: 20230722
  Serious: Yes (Other)
  Sender: FDA-Public Use
  Company Number: US-ABBVIE-5184124

PATIENT
  Sex: Male

DRUGS (1)
  1. RINVOQ [Suspect]
     Active Substance: UPADACITINIB
     Indication: Psoriatic arthropathy
     Route: 048

REACTIONS (9)
  - Systemic lupus erythematosus [Unknown]
  - Psoriasis [Unknown]
  - Gait disturbance [Unknown]
  - Tenderness [Unknown]
  - Musculoskeletal stiffness [Unknown]
  - Lipids increased [Unknown]
  - Blood cholesterol increased [Unknown]
  - Pain [Unknown]
  - Arthralgia [Unknown]
